FAERS Safety Report 16000861 (Version 1)
Quarter: 2019Q1

REPORT INFORMATION
  Report Type: Spontaneous
  Country: ES (occurrence: ES)
  Receive Date: 20190225
  Receipt Date: 20190225
  Transmission Date: 20190418
  Serious: Yes (Other)
  Sender: FDA-Public Use
  Company Number: ES-GILEAD-2019-0389592

PATIENT
  Age: 52 Year
  Sex: Female

DRUGS (1)
  1. EPCLUSA [Suspect]
     Active Substance: SOFOSBUVIR\VELPATASVIR
     Indication: CHRONIC HEPATITIS C
     Dosage: UNK
     Route: 065
     Dates: start: 201710, end: 20180123

REACTIONS (3)
  - Maxillofacial operation [Unknown]
  - Thyroid function test abnormal [Unknown]
  - Ligament sprain [Unknown]

NARRATIVE: CASE EVENT DATE: 201901
